FAERS Safety Report 17019758 (Version 1)
Quarter: 2019Q4

REPORT INFORMATION
  Report Type: Spontaneous
  Country: US (occurrence: US)
  Receive Date: 20191112
  Receipt Date: 20191112
  Transmission Date: 20200122
  Serious: No
  Sender: FDA-Public Use
  Company Number: US-BTG-201900059

PATIENT
  Age: 39 Year
  Sex: Female

DRUGS (5)
  1. CROFAB [Suspect]
     Active Substance: CROTALIDAE POLYVALENT IMMUNE FAB (OVINE)
     Indication: SNAKE BITE
     Dosage: 6 VIALS OF CROFAB AT 9.20 AM
     Route: 065
     Dates: start: 20190409
  2. CROFAB [Suspect]
     Active Substance: CROTALIDAE POLYVALENT IMMUNE FAB (OVINE)
     Indication: SNAKE BITE
     Dosage: TWO (2) VIALS EVERY SIX (6) HOURS [THREE (3) DOSES] ON 10-APR-19??
     Route: 065
  3. CROFAB [Suspect]
     Active Substance: CROTALIDAE POLYVALENT IMMUNE FAB (OVINE)
     Indication: SNAKE BITE
     Dosage: 6 VIALS OF CROFAB AT 8.20 AM
     Route: 065
     Dates: start: 20190409
  4. CROFAB [Suspect]
     Active Substance: CROTALIDAE POLYVALENT IMMUNE FAB (OVINE)
     Indication: SNAKE BITE
     Dosage: 4-6 VIALS
     Route: 065
     Dates: start: 20190409
  5. CROFAB [Suspect]
     Active Substance: CROTALIDAE POLYVALENT IMMUNE FAB (OVINE)
     Indication: SNAKE BITE
     Dosage: ONE DOSE OF CROFAB (2 VIALS) AND WILL RECEIVE TWO MORE
     Route: 065
     Dates: start: 20190409

REACTIONS (5)
  - Skin irritation [Unknown]
  - Puncture site pain [Unknown]
  - Oedema peripheral [Unknown]
  - Peripheral swelling [Recovered/Resolved]
  - Tenderness [Unknown]
